FAERS Safety Report 14767368 (Version 2)
Quarter: 2018Q2

REPORT INFORMATION
  Report Type: Report from Study
  Country: US (occurrence: US)
  Receive Date: 20180417
  Receipt Date: 20180622
  Transmission Date: 20180711
  Serious: Yes (Hospitalization, Other)
  Sender: FDA-Public Use
  Company Number: US-GILEAD-2018-0313813

PATIENT
  Age: 66 Year
  Sex: Female

DRUGS (1)
  1. AMBRISENTAN [Suspect]
     Active Substance: AMBRISENTAN
     Indication: PRODUCT USED FOR UNKNOWN INDICATION
     Dosage: 5 MG, QD
     Route: 065
     Dates: start: 20171215

REACTIONS (8)
  - Oedema peripheral [Not Recovered/Not Resolved]
  - Haemoglobin decreased [Unknown]
  - Hepatic cirrhosis [Unknown]
  - Liver transplant [Unknown]
  - Oedema [Unknown]
  - Malaise [Unknown]
  - Unevaluable event [Unknown]
  - Fatigue [Not Recovered/Not Resolved]

NARRATIVE: CASE EVENT DATE: 201805
